FAERS Safety Report 7040283-5 (Version None)
Quarter: 2010Q4

REPORT INFORMATION
  Report Type: 
  Country: None (occurrence: None)
  Receive Date: 20101012
  Receipt Date: 20100424
  Transmission Date: 20110411
  Serious: Yes (Other)
  Sender: FDA-Public Use
  Company Number: MX-PFIZER INC-2010052473

PATIENT
  Age: 44 Year
  Sex: Male
  Weight: 88 kg

DRUGS (3)
  1. VIAGRA [Suspect]
     Indication: ERECTILE DYSFUNCTION
     Dosage: 50 MG, UNK
     Route: 048
     Dates: start: 20091101, end: 20100401
  2. OROXADIN [Concomitant]
     Indication: HYPERTRIGLYCERIDAEMIA
     Dosage: 100 MG, 1X/DAY
     Route: 048
     Dates: start: 20100101, end: 20100101
  3. VYTORIN [Concomitant]
     Indication: HYPERTRIGLYCERIDAEMIA
     Dosage: UNK
     Route: 048
     Dates: start: 20100101, end: 20100101

REACTIONS (2)
  - HYPERTRIGLYCERIDAEMIA [None]
  - VISUAL ACUITY REDUCED [None]
